FAERS Safety Report 5208816-9 (Version None)
Quarter: 2007Q1

REPORT INFORMATION
  Report Type: 
  Country: None (occurrence: None)
  Receive Date: 20070116
  Receipt Date: 20070109
  Transmission Date: 20070707
  Serious: Yes (Death, Other)
  Sender: FDA-Public Use
  Company Number: US-ELI_LILLY_AND_COMPANY-US200611001216

PATIENT
  Age: 63 Year
  Sex: Male

DRUGS (3)
  1. XIGRIS [Suspect]
     Dosage: 24 , UNK
     Dates: start: 20061101, end: 20061101
  2. ASPIRIN [Concomitant]
     Dosage: 325 MG, UNK
  3. PLAVIX                                  /UNK/ [Concomitant]

REACTIONS (3)
  - LUNG NEOPLASM MALIGNANT [None]
  - MULTI-ORGAN FAILURE [None]
  - PHARYNGEAL HAEMORRHAGE [None]
